FAERS Safety Report 10226349 (Version 1)
Quarter: 2014Q2

REPORT INFORMATION
  Report Type: Spontaneous
  Country: DE (occurrence: DE)
  Receive Date: 20140609
  Receipt Date: 20140609
  Transmission Date: 20141212
  Serious: Yes (Other)
  Sender: FDA-Public Use
  Company Number: GXKR2014DE002162

PATIENT
  Sex: 0

DRUGS (6)
  1. RITUXIMAB [Suspect]
     Indication: B-CELL LYMPHOMA
     Dosage: 630 MG/D
     Route: 064
     Dates: start: 20131031, end: 20131115
  2. CYCLOPHOSPHAMID [Suspect]
     Indication: B-CELL LYMPHOMA
     Dosage: 1260 [MG/D ]
     Route: 064
     Dates: start: 20131101, end: 20131116
  3. DOXORUBICIN [Suspect]
     Indication: B-CELL LYMPHOMA
     Dosage: 84 [MG/D ]
     Route: 064
     Dates: start: 20131101, end: 20131116
  4. VINCRISTINE [Suspect]
     Indication: B-CELL LYMPHOMA
     Dosage: 2 [MG/D ]
     Route: 064
     Dates: start: 20131101, end: 20131116
  5. PREDNISOLON [Concomitant]
     Indication: B-CELL LYMPHOMA
     Dosage: 100 [MG/D ]
     Route: 064
     Dates: start: 20131101, end: 20131120
  6. NEULASTA [Concomitant]
     Indication: B-CELL LYMPHOMA
     Dosage: UNK UKN, UNK
     Route: 064

REACTIONS (3)
  - Anaemia [Unknown]
  - Granulocytopenia neonatal [Unknown]
  - Inguinal hernia [Recovered/Resolved with Sequelae]
